FAERS Safety Report 8358399-X (Version None)
Quarter: 2012Q2

REPORT INFORMATION
  Report Type: 
  Country: None (occurrence: None)
  Receive Date: 20120514
  Receipt Date: 20111104
  Transmission Date: 20120825
  Serious: Yes (Hospitalization)
  Sender: FDA-Public Use
  Company Number: US-ALEXION-A201100525

PATIENT
  Sex: Female

DRUGS (3)
  1. BENADRYL [Concomitant]
  2. SOLIRIS [Suspect]
     Indication: PAROXYSMAL NOCTURNAL HAEMOGLOBINURIA
     Dosage: UNK
     Route: 042
     Dates: start: 20101101, end: 20110601
  3. SOLU-MEDROL [Concomitant]

REACTIONS (1)
  - ANAPHYLACTIC TRANSFUSION REACTION [None]
